FAERS Safety Report 23722443 (Version 1)
Quarter: 2024Q2

REPORT INFORMATION
  Report Type: Spontaneous
  Country: US (occurrence: US)
  Receive Date: 20240409
  Receipt Date: 20240409
  Transmission Date: 20240716
  Serious: No
  Sender: FDA-Public Use
  Company Number: US-BAYER-2024A051167

PATIENT
  Age: 44 Year
  Sex: Female

DRUGS (1)
  1. MIRENA [Suspect]
     Active Substance: LEVONORGESTREL
     Indication: Intrauterine contraception
     Dosage: 20?G/DAY
     Route: 015
     Dates: start: 201902

REACTIONS (10)
  - Brain fog [None]
  - Mood altered [None]
  - Libido decreased [None]
  - Hot flush [None]
  - Night sweats [None]
  - Arthralgia [None]
  - Myalgia [None]
  - Vulvovaginal dryness [None]
  - Weight increased [None]
  - Hormone level abnormal [None]
